FAERS Safety Report 5426739-7 (Version None)
Quarter: 2007Q3

REPORT INFORMATION
  Report Type: 
  Country: None (occurrence: None)
  Receive Date: 20070731
  Receipt Date: 20070502
  Transmission Date: 20080115
  Serious: No
  Sender: FDA-Public Use
  Company Number: US200705000891

PATIENT
  Age: 56 Year
  Sex: Female
  Weight: 89.8 kg

DRUGS (5)
  1. BYETTA [Suspect]
     Indication: WEIGHT DECREASED
     Dosage: 5 UG, 2/D, SUBCUTANEOUS; ,10 ,UG, 2/D, SUBCUTANEOUS
     Route: 058
     Dates: start: 20060901, end: 20061001
  2. BYETTA [Suspect]
     Indication: WEIGHT DECREASED
     Dosage: 5 UG, 2/D, SUBCUTANEOUS; ,10 ,UG, 2/D, SUBCUTANEOUS
     Route: 058
     Dates: start: 20061001
  3. METFORMIN HCL [Concomitant]
  4. LOTENSIN [Concomitant]
  5. TRICOR [Concomitant]

REACTIONS (9)
  - BLOOD GLUCOSE ABNORMAL [None]
  - DRUG INEFFECTIVE [None]
  - DYSPEPSIA [None]
  - INFLUENZA [None]
  - INJECTION SITE BRUISING [None]
  - NAUSEA [None]
  - VOMITING [None]
  - WEIGHT DECREASED [None]
  - WEIGHT INCREASED [None]
